FAERS Safety Report 17125497 (Version 1)
Quarter: 2019Q4

REPORT INFORMATION
  Report Type: Spontaneous
  Country: JP (occurrence: JP)
  Receive Date: 20191207
  Receipt Date: 20191207
  Transmission Date: 20200122
  Serious: Yes (Other)
  Sender: FDA-Public Use
  Company Number: JP-ROCHE-2490597

PATIENT
  Age: 76 Year
  Sex: Male

DRUGS (3)
  1. 5-FU [FLUOROURACIL] [Concomitant]
     Active Substance: FLUOROURACIL
     Indication: COLON CANCER
     Route: 065
  2. ELPLAT [Concomitant]
     Active Substance: OXALIPLATIN
     Indication: COLON CANCER
     Route: 041
  3. AVASTIN [Suspect]
     Active Substance: BEVACIZUMAB
     Indication: COLON CANCER
     Route: 041

REACTIONS (1)
  - Interstitial lung disease [Unknown]
